FAERS Safety Report 20408136 (Version 5)
Quarter: 2022Q2

REPORT INFORMATION
  Report Type: Report from Study
  Country: ZA (occurrence: ZA)
  Receive Date: 20220201
  Receipt Date: 20220519
  Transmission Date: 20220721
  Serious: Yes (Hospitalization, Other)
  Sender: FDA-Public Use
  Company Number: ZA-SA-SAC20220125000995

PATIENT
  Age: 78 Year
  Sex: Male

DRUGS (9)
  1. INSULIN GLARGINE [Suspect]
     Active Substance: INSULIN GLARGINE
     Indication: Diabetes mellitus
     Dosage: 20U,QD
     Route: 058
     Dates: start: 20220104
  2. LOSARTAN POTASSIUM [Concomitant]
     Active Substance: LOSARTAN POTASSIUM
     Dosage: 50MG,QD
     Dates: start: 20220104
  3. NOVORAPID [Concomitant]
     Active Substance: INSULIN ASPART
     Dosage: 10U,TID
     Dates: start: 20220104
  4. CARVEDILOL [Concomitant]
     Active Substance: CARVEDILOL
     Dosage: 12.5 MG, QD
     Dates: start: 20220104
  5. CLOPIDOGREL BISULFATE [Concomitant]
     Active Substance: CLOPIDOGREL BISULFATE
     Dosage: 75MG,QD
     Dates: start: 20220106
  6. FUROSEMIDE [Concomitant]
     Active Substance: FUROSEMIDE
     Dosage: 40 MG, BID
     Dates: start: 20220104
  7. ECOTRIN [Concomitant]
     Active Substance: ASPIRIN
     Dosage: 81 MG, QD
     Dates: start: 20210121
  8. CLOPIDOGREL BISULFATE [Concomitant]
     Active Substance: CLOPIDOGREL BISULFATE
     Dosage: BL-75 MG
     Dates: start: 20220106
  9. ATORVASTATIN [Concomitant]
     Active Substance: ATORVASTATIN
     Dosage: BT-20 MG
     Dates: start: 20210121

REACTIONS (6)
  - Gastrointestinal carcinoma [Not Recovered/Not Resolved]
  - Hospitalisation [Unknown]
  - Blood glucose decreased [Recovered/Resolved]
  - Decreased appetite [Recovered/Resolved]
  - Blood glucose increased [Not Recovered/Not Resolved]
  - Hypoglycaemia [Recovered/Resolved]
